FAERS Safety Report 4379951-2 (Version None)
Quarter: 2004Q2

REPORT INFORMATION
  Report Type: 
  Country: None (occurrence: None)
  Receive Date: 20040614
  Receipt Date: 20040601
  Transmission Date: 20050107
  Serious: No
  Sender: FDA-Public Use
  Company Number: 04P-143-0262677-00

PATIENT
  Age: 67 Year
  Sex: Female
  Weight: 68.0396 kg

DRUGS (1)
  1. BIAXIN [Suspect]
     Indication: GINGIVITIS
     Dosage: 250 MG, 2 IN 1 D, PER ORAL
     Route: 048
     Dates: start: 20040529, end: 20040531

REACTIONS (5)
  - ABDOMINAL PAIN UPPER [None]
  - HEADACHE [None]
  - NAUSEA [None]
  - PHOTOSENSITIVITY REACTION [None]
  - VAGINAL CANDIDIASIS [None]
